FAERS Safety Report 11852838 (Version 1)
Quarter: 2015Q4

REPORT INFORMATION
  Report Type: Report from Study
  Country: CA (occurrence: CA)
  Receive Date: 20151218
  Receipt Date: 20151218
  Transmission Date: 20160305
  Serious: Yes (Hospitalization)
  Sender: FDA-Public Use
  Company Number: CA-009507513-1512CAN007978

PATIENT
  Age: 51 Year
  Sex: Male

DRUGS (3)
  1. MICAFUNGIN [Concomitant]
     Active Substance: MICAFUNGIN
     Indication: RETROPERITONEAL ABSCESS
     Dosage: 100 MG, QD
     Route: 042
     Dates: start: 20150827
  2. ZERBAXA [Suspect]
     Active Substance: CEFTOLOZANE SULFATE\TAZOBACTAM SODIUM
     Indication: RETROPERITONEAL ABSCESS
     Dosage: 1.5 G, Q8H
     Route: 042
     Dates: start: 20150904
  3. METRONIDAZOLE. [Concomitant]
     Active Substance: METRONIDAZOLE
     Indication: RETROPERITONEAL ABSCESS
     Dosage: 500 MG, Q8H
     Route: 048
     Dates: start: 20150904

REACTIONS (4)
  - Fatigue [Not Recovered/Not Resolved]
  - Diarrhoea [Not Recovered/Not Resolved]
  - Adverse event [Unknown]
  - Bone pain [Recovered/Resolved]

NARRATIVE: CASE EVENT DATE: 2015
